FAERS Safety Report 7138419-0 (Version None)
Quarter: 2010Q4

REPORT INFORMATION
  Report Type: 
  Country: None (occurrence: None)
  Receive Date: 20101206
  Receipt Date: 20101122
  Transmission Date: 20110411
  Serious: Yes (Hospitalization)
  Sender: FDA-Public Use
  Company Number: AU-ELI_LILLY_AND_COMPANY-AU201009001950

PATIENT
  Sex: Male

DRUGS (14)
  1. GEMCITABINE HCL [Suspect]
     Indication: PANCREATIC CARCINOMA METASTATIC
     Dosage: 1000 MG/M2, OTHER
     Route: 065
     Dates: start: 20100513, end: 20100915
  2. GEMCITABINE HCL [Suspect]
     Dosage: REDUCED DOSE
     Dates: start: 20100916
  3. PACLITAXEL [Suspect]
     Indication: PANCREATIC CARCINOMA METASTATIC
     Dosage: 125 MG/M2, OTHER
     Route: 065
     Dates: start: 20100513, end: 20100915
  4. PACLITAXEL [Suspect]
     Dosage: REDUCED DOSE
     Dates: start: 20100916
  5. NOVOMIX                            /01475801/ [Concomitant]
     Indication: DIABETES MELLITUS
     Route: 058
     Dates: start: 20100401
  6. PANTOPRAZOLE [Concomitant]
     Indication: GASTROOESOPHAGEAL REFLUX DISEASE
     Route: 048
     Dates: start: 20100430
  7. MS CONTIN [Concomitant]
     Indication: PAIN
     Route: 048
     Dates: start: 20100430
  8. AMITRIPTYLLIN [Concomitant]
     Indication: PAIN
     Route: 048
     Dates: start: 20100401
  9. COLOXYL WITH SENNA [Concomitant]
     Indication: CONSTIPATION
     Route: 048
     Dates: start: 20100401
  10. MORPHINE [Concomitant]
     Indication: PAIN
     Route: 048
     Dates: start: 20100401
  11. MOVICOL [Concomitant]
     Indication: CONSTIPATION
     Route: 048
     Dates: start: 20100401
  12. DEXAMETHASONE [Concomitant]
     Indication: PROPHYLAXIS
     Route: 042
     Dates: start: 20100513
  13. GRANISETRON HCL [Concomitant]
     Indication: PROPHYLAXIS
     Route: 048
     Dates: start: 20100513
  14. ALDACTONE [Concomitant]
     Indication: OEDEMA PERIPHERAL
     Route: 048
     Dates: start: 20100729

REACTIONS (1)
  - LOWER RESPIRATORY TRACT INFECTION [None]
